FAERS Safety Report 5312169-5 (Version None)
Quarter: 2007Q2

REPORT INFORMATION
  Report Type: 
  Country: None (occurrence: None)
  Receive Date: 20070430
  Receipt Date: 20070418
  Transmission Date: 20071010
  Serious: Yes (Other)
  Sender: FDA-Public Use
  Company Number: US-PURDUE-USA_2007_0027164

PATIENT
  Age: 58 Year
  Sex: Male

DRUGS (1)
  1. MORPHINE SULFATE [Suspect]
     Indication: PAIN
     Route: 037

REACTIONS (9)
  - CONFUSIONAL STATE [None]
  - CONSTIPATION [None]
  - DRUG INEFFECTIVE [None]
  - FAECALOMA [None]
  - INTESTINAL PERFORATION [None]
  - LIBIDO DECREASED [None]
  - OVERDOSE [None]
  - SOMNOLENCE [None]
  - WEIGHT INCREASED [None]
